FAERS Safety Report 6463653-2 (Version None)
Quarter: 2009Q4

REPORT INFORMATION
  Report Type: 
  Country: None (occurrence: None)
  Receive Date: 20091130
  Receipt Date: 20091130
  Transmission Date: 20100525
  Serious: No
  Sender: FDA-Public Use
  Company Number: None

PATIENT
  Age: 68 Year
  Sex: Male
  Weight: 86.637 kg

DRUGS (2)
  1. THALLIUM LANTHEUS MED IMAG/CARDINAL [Suspect]
     Indication: DIAGNOSTIC PROCEDURE
     Dosage: 3MCI DOSE IV TIME DOSE
     Route: 042
     Dates: start: 20091120, end: 20091120
  2. THALLIUM [Suspect]

REACTIONS (3)
  - MEDICATION ERROR [None]
  - PRODUCT LABEL ON WRONG PRODUCT [None]
  - WRONG DRUG ADMINISTERED [None]
